FAERS Safety Report 11613498 (Version 2)
Quarter: 2015Q4

REPORT INFORMATION
  Report Type: Report from Study
  Country: US (occurrence: US)
  Receive Date: 20151008
  Receipt Date: 20151026
  Transmission Date: 20160304
  Serious: Yes (Hospitalization)
  Sender: FDA-Public Use
  Company Number: US-ACTELION-A-NJ2015-125281

PATIENT
  Age: 75 Year
  Sex: Female

DRUGS (3)
  1. VENTAVIS [Suspect]
     Active Substance: ILOPROST
     Dosage: UNK
     Route: 055
  2. LETAIRIS [Concomitant]
     Active Substance: AMBRISENTAN
  3. VENTAVIS [Suspect]
     Active Substance: ILOPROST
     Indication: PULMONARY ARTERIAL HYPERTENSION
     Dosage: 5 MCG, 6-9 X/ADAY
     Route: 055
     Dates: start: 20101202

REACTIONS (3)
  - Mechanical ventilation [Unknown]
  - Gastrointestinal carcinoma [Unknown]
  - Intestinal resection [Unknown]
